FAERS Safety Report 7045642-2 (Version None)
Quarter: 2010Q4

REPORT INFORMATION
  Report Type: 
  Country: None (occurrence: None)
  Receive Date: 20101013
  Receipt Date: 20101013
  Transmission Date: 20110411
  Serious: Yes (Other)
  Sender: FDA-Public Use
  Company Number: None

PATIENT

DRUGS (1)
  1. MARCAINE [Suspect]
     Indication: CAESAREAN SECTION
     Dosage: 2ML ONCE EPIDURAL
     Route: 008
     Dates: start: 20101008, end: 20101008

REACTIONS (1)
  - DRUG INEFFECTIVE [None]
